FAERS Safety Report 9759707 (Version 2)
Quarter: 2015Q3

REPORT INFORMATION
  Report Type: Spontaneous
  Country: US (occurrence: US)
  Receive Date: 20131216
  Receipt Date: 20150806
  Transmission Date: 20151125
  Serious: No
  Sender: FDA-Public Use
  Company Number: US-GILEAD-2010-0029029

PATIENT
  Age: 76 Year
  Sex: Female
  Weight: 43.09 kg

DRUGS (11)
  1. REVATIO [Concomitant]
     Active Substance: SILDENAFIL CITRATE
  2. LOZOL [Concomitant]
     Active Substance: INDAPAMIDE
  3. PREDNISONE. [Concomitant]
     Active Substance: PREDNISONE
  4. OXYGEN. [Concomitant]
     Active Substance: OXYGEN
  5. SYNTHROID [Concomitant]
     Active Substance: LEVOTHYROXINE SODIUM
  6. VITAMIN D [Concomitant]
     Active Substance: CHOLECALCIFEROL
  7. LETAIRIS [Suspect]
     Active Substance: AMBRISENTAN
     Indication: PULMONARY ARTERIAL HYPERTENSION
     Route: 048
     Dates: start: 20080710
  8. MOTRIN [Concomitant]
     Active Substance: IBUPROFEN
  9. NORVASC [Concomitant]
     Active Substance: AMLODIPINE BESYLATE
  10. TASPRIN [Concomitant]
  11. PRILOSEC [Concomitant]
     Active Substance: OMEPRAZOLE MAGNESIUM

REACTIONS (1)
  - Skin exfoliation [Unknown]

NARRATIVE: CASE EVENT DATE: 20100504
